FAERS Safety Report 8118398-X (Version None)
Quarter: 2012Q1

REPORT INFORMATION
  Report Type: 
  Country: None (occurrence: None)
  Receive Date: 20120207
  Receipt Date: 20120126
  Transmission Date: 20120608
  Serious: Yes (Hospitalization)
  Sender: FDA-Public Use
  Company Number: US-JNJFOC-20111005224

PATIENT
  Age: 22 Year
  Sex: Female
  Weight: 57.8 kg

DRUGS (8)
  1. VICODIN [Suspect]
     Indication: PRODUCT USED FOR UNKNOWN INDICATION
  2. CYCLOBENZAPRINE HCL [Suspect]
     Indication: SELF INJURIOUS BEHAVIOUR
     Route: 065
  3. CODEINE SULFATE [Suspect]
     Indication: PRODUCT USED FOR UNKNOWN INDICATION
  4. ALCOHOL [Suspect]
     Indication: PRODUCT USED FOR UNKNOWN INDICATION
  5. CARISOPRODOL [Suspect]
     Indication: PRODUCT USED FOR UNKNOWN INDICATION
  6. ROXICET [Suspect]
     Indication: PRODUCT USED FOR UNKNOWN INDICATION
  7. PERCOCET [Suspect]
     Indication: PRODUCT USED FOR UNKNOWN INDICATION
  8. CONTRACEPTIVES [Concomitant]

REACTIONS (3)
  - MULTIPLE DRUG OVERDOSE [None]
  - LOSS OF CONSCIOUSNESS [None]
  - INTENTIONAL SELF-INJURY [None]
